FAERS Safety Report 23289782 (Version 2)
Quarter: 2023Q4

REPORT INFORMATION
  Report Type: Spontaneous
  Country: CN (occurrence: CN)
  Receive Date: 20231212
  Receipt Date: 20231226
  Transmission Date: 20240110
  Serious: Yes (Hospitalization, Other)
  Sender: FDA-Public Use
  Company Number: CN-TAKEDA-2023TUS118758

PATIENT
  Age: 53 Year
  Sex: Female
  Weight: 56.5 kg

DRUGS (10)
  1. ADCETRIS [Suspect]
     Active Substance: BRENTUXIMAB VEDOTIN
     Indication: Hodgkin^s disease mixed cellularity stage unspecified
     Dosage: 50 MILLIGRAM, QD
     Route: 041
     Dates: start: 20230817, end: 20230817
  2. ADCETRIS [Suspect]
     Active Substance: BRENTUXIMAB VEDOTIN
     Dosage: 50 MILLIGRAM, QD
     Route: 041
     Dates: start: 20231123, end: 20231123
  3. SODIUM CHLORIDE [Suspect]
     Active Substance: SODIUM CHLORIDE
     Indication: Product used for unknown indication
     Dosage: 40 MILLILITER, QD
     Route: 042
     Dates: start: 20230817, end: 20230817
  4. SODIUM CHLORIDE [Suspect]
     Active Substance: SODIUM CHLORIDE
     Dosage: 150 MILLILITER, QD
     Route: 041
     Dates: start: 20230817, end: 20230817
  5. SODIUM CHLORIDE [Suspect]
     Active Substance: SODIUM CHLORIDE
     Dosage: 40 ML, QD
     Route: 041
     Dates: start: 20231123, end: 20231123
  6. SODIUM CHLORIDE [Suspect]
     Active Substance: SODIUM CHLORIDE
     Dosage: 150 MILLILITER, QD
     Route: 041
     Dates: start: 20231123, end: 20231123
  7. DOXORUBICIN HYDROCHLORIDE [Suspect]
     Active Substance: DOXORUBICIN HYDROCHLORIDE
     Indication: Hodgkin^s disease mixed cellularity stage unspecified
     Dosage: 40 MILLIGRAM, QD
     Route: 041
     Dates: start: 20230817, end: 20230817
  8. VINDESINE SULFATE [Suspect]
     Active Substance: VINDESINE SULFATE
     Indication: Hodgkin^s disease mixed cellularity stage unspecified
     Dosage: 4 MILLIGRAM, QD
     Route: 042
     Dates: start: 20230817, end: 20230817
  9. VINDESINE SULFATE [Suspect]
     Active Substance: VINDESINE SULFATE
     Dosage: 4 MILLIGRAM, QD
     Route: 042
     Dates: start: 20231123, end: 20231123
  10. DEXTROSE [Suspect]
     Active Substance: DEXTROSE\DEXTROSE MONOHYDRATE
     Indication: Product used for unknown indication
     Dosage: 250 MILLILITER, QD
     Route: 041
     Dates: start: 20230817, end: 20230817

REACTIONS (3)
  - White blood cell count decreased [Recovered/Resolved]
  - Neutrophil count decreased [Recovered/Resolved]
  - Neutropenia [Recovered/Resolved]

NARRATIVE: CASE EVENT DATE: 20230824
